FAERS Safety Report 7421681-4 (Version None)
Quarter: 2011Q2

REPORT INFORMATION
  Report Type: 
  Country: None (occurrence: None)
  Receive Date: 20110418
  Receipt Date: 20110408
  Transmission Date: 20111010
  Serious: Yes (Hospitalization, Disabling, Other)
  Sender: FDA-Public Use
  Company Number: US-ROCHE-386484

PATIENT
  Sex: Male
  Weight: 77.1 kg

DRUGS (2)
  1. ACCUTANE [Suspect]
     Indication: ACNE
     Dosage: ON 17 MAR 1989, DOSE WAS NOTED TO BE 40 MG.
     Route: 048
     Dates: start: 19880801, end: 19890801
  2. ACETAMINOPHEN [Concomitant]

REACTIONS (17)
  - INFLUENZA LIKE ILLNESS [None]
  - GASTROOESOPHAGEAL REFLUX DISEASE [None]
  - RECTAL HAEMORRHAGE [None]
  - GASTROENTERITIS [None]
  - PROCTITIS [None]
  - CROHN'S DISEASE [None]
  - INTESTINAL HAEMORRHAGE [None]
  - COLITIS [None]
  - ILEITIS [None]
  - IRRITABLE BOWEL SYNDROME [None]
  - RECTAL TENESMUS [None]
  - COLITIS ULCERATIVE [None]
  - PNEUMONIA [None]
  - ANAL FISTULA [None]
  - GASTROINTESTINAL DISORDER [None]
  - INFLAMMATORY BOWEL DISEASE [None]
  - PROCTOCOLITIS [None]
